FAERS Safety Report 14072567 (Version 1)
Quarter: 2017Q4

REPORT INFORMATION
  Report Type: Spontaneous
  Country: US (occurrence: None)
  Receive Date: 20171011
  Receipt Date: 20171011
  Transmission Date: 20180321
  Serious: Yes (Death, Hospitalization)
  Sender: FDA-Public Use
  Company Number: None

PATIENT
  Age: 11 Year
  Sex: Male
  Weight: 70.6 kg

DRUGS (5)
  1. MITOXANTRONE HYDROCHLORIDE. [Suspect]
     Active Substance: MITOXANTRONE HYDROCHLORIDE
     Dates: end: 20170606
  2. DEXAMETHASONE. [Suspect]
     Active Substance: DEXAMETHASONE
     Dates: end: 20170610
  3. ONCASPAR [Suspect]
     Active Substance: PEGASPARGASE
     Dates: end: 20170609
  4. VINCRISTINE SULFATE. [Suspect]
     Active Substance: VINCRISTINE SULFATE
     Dates: end: 20170619
  5. METHOTREXATE. [Suspect]
     Active Substance: METHOTREXATE
     Dates: end: 20170605

REACTIONS (21)
  - Hyperkalaemia [None]
  - Hyponatraemia [None]
  - Tachypnoea [None]
  - Agitation [None]
  - Candida infection [None]
  - Multi-organ disorder [None]
  - Diarrhoea [None]
  - Acute kidney injury [None]
  - Acute respiratory failure [None]
  - Hyperglycaemia [None]
  - Escherichia infection [None]
  - Colitis [None]
  - Febrile neutropenia [None]
  - Clostridium test positive [None]
  - Inappropriate antidiuretic hormone secretion [None]
  - Respiratory failure [None]
  - Lactic acidosis [None]
  - Cardiac arrest [None]
  - Hypotension [None]
  - Urine output decreased [None]
  - Culture urine positive [None]

NARRATIVE: CASE EVENT DATE: 20170613
